FAERS Safety Report 10058336 (Version 1)
Quarter: 2014Q2

REPORT INFORMATION
  Report Type: Spontaneous
  Country: US (occurrence: None)
  Receive Date: 20140403
  Receipt Date: 20140403
  Transmission Date: 20141212
  Serious: Yes (Hospitalization)
  Sender: FDA-Public Use
  Company Number: None

PATIENT
  Age: 79 Year
  Sex: Female
  Weight: 52.16 kg

DRUGS (12)
  1. BONIVA [Suspect]
     Indication: OSTEOPOROSIS
     Dosage: THINK 150? 1 DOSE ONCE MONTH MOUTH
     Route: 048
  2. BONIVA [Suspect]
     Indication: OSTEONECROSIS
     Dosage: THINK 150? 1 DOSE ONCE MONTH MOUTH
     Route: 048
  3. ZOCOR [Concomitant]
  4. CYMBALTA [Concomitant]
  5. HYDROCODON [Concomitant]
  6. TRIPLIX [Concomitant]
  7. MICARDIS [Concomitant]
  8. NEXIUM [Concomitant]
  9. ASPIRIN [Concomitant]
  10. CLARITIN D [Concomitant]
  11. VITAMIN D [Concomitant]
  12. CALCIUM [Concomitant]

REACTIONS (3)
  - Tooth extraction [None]
  - Impaired healing [None]
  - Jaw disorder [None]
